FAERS Safety Report 4530829-0 (Version None)
Quarter: 2004Q4

REPORT INFORMATION
  Report Type: 
  Country: None (occurrence: None)
  Receive Date: 20041215
  Receipt Date: 20041129
  Transmission Date: 20050328
  Serious: Yes (Other)
  Sender: FDA-Public Use
  Company Number: 2004IM000978

PATIENT
  Age: 55 Year
  Sex: Female

DRUGS (2)
  1. INFERGEN [Suspect]
     Indication: HEPATITIS C
     Dosage: SUBCUTANEOUS
     Route: 058
     Dates: start: 20030206, end: 20030430
  2. HALCION [Concomitant]

REACTIONS (7)
  - ANAEMIA [None]
  - DERMATITIS [None]
  - DRUG ERUPTION [None]
  - GASTRIC ULCER [None]
  - HYPOTHYROIDISM [None]
  - PYREXIA [None]
  - RETINAL HAEMORRHAGE [None]
